FAERS Safety Report 5179754-5 (Version None)
Quarter: 2006Q4

REPORT INFORMATION
  Report Type: 
  Country: None (occurrence: None)
  Receive Date: 20061211
  Receipt Date: 20061130
  Transmission Date: 20070319
  Serious: Yes (Hospitalization, Other)
  Sender: FDA-Public Use
  Company Number: 2006144692

PATIENT
  Age: 59 Year
  Sex: Male

DRUGS (9)
  1. LIPITOR [Suspect]
     Indication: ANGINA PECTORIS
     Dosage: 10 MG (1 D), ORAL
     Route: 048
     Dates: start: 20061101, end: 20061114
  2. TICLOPIDINE HCL [Suspect]
     Indication: ANGINA PECTORIS
     Dosage: 200 MG (1 D), ORAL
     Route: 048
     Dates: start: 20061101, end: 20061114
  3. ISOSORBIDE MONONITRATE [Suspect]
     Indication: ANGINA PECTORIS
     Dosage: ORAL
     Route: 048
     Dates: start: 20060914, end: 20061114
  4. ARTIST [Concomitant]
  5. WARFARIN SODIUM [Concomitant]
  6. BUFFERIN (ACETYLSALICYLIC ACID, ALUMINIUM CYLCINATE, MAGNESIUM CARBONA [Concomitant]
  7. MAGNESIUM CARBONATE (MAGNESIUM CARBONATE) [Concomitant]
  8. PARAMIDIN (BUCOLOME) [Concomitant]
  9. ALL OTHER THERAPEUTIC PRODUCTS (ALL OTHER THERAPEUTIC PRODUCTS [Concomitant]

REACTIONS (4)
  - DRUG ERUPTION [None]
  - EOSINOPHIL COUNT INCREASED [None]
  - ERYTHEMA [None]
  - WHITE BLOOD CELL COUNT DECREASED [None]
